FAERS Safety Report 17676995 (Version 1)
Quarter: 2020Q2

REPORT INFORMATION
  Report Type: Other
  Country: FR (occurrence: FR)
  Receive Date: 20200416
  Receipt Date: 20200416
  Transmission Date: 20200714
  Serious: Yes (Hospitalization)
  Sender: FDA-Public Use
  Company Number: FR-ARBOR PHARMACEUTICALS, LLC-FR-2020ARB000308

PATIENT
  Age: 21 Year
  Sex: Male

DRUGS (6)
  1. TERCIAN                            /00759301/ [Suspect]
     Active Substance: CYAMEMAZINE
     Indication: AGITATION
     Dosage: 40 MG/ML (IF REQUIRED) (50 MG,1 D)
     Route: 048
     Dates: start: 2018
  2. THERALENE [Concomitant]
     Active Substance: TRIMEPRAZINE
     Indication: PRODUCT USED FOR UNKNOWN INDICATION
     Dosage: UNK
     Route: 048
  3. TRIPTODUR [Suspect]
     Active Substance: TRIPTORELIN
     Indication: EXHIBITIONISM
     Dosage: 0.0119 DOSAGE FORMS (1 DOSAGE FORMS,1 IN 12 WK)
     Route: 030
     Dates: start: 20190705, end: 20190924
  4. CLOZAPINE. [Suspect]
     Active Substance: CLOZAPINE
     Indication: AUTISM SPECTRUM DISORDER
     Dosage: UNK
     Route: 048
     Dates: start: 20190814
  5. ACEBUTOLOL [Concomitant]
     Active Substance: ACEBUTOLOL
     Indication: PRODUCT USED FOR UNKNOWN INDICATION
     Dosage: 400 MG, 1 D
     Route: 048
  6. CIRCADIN [Concomitant]
     Active Substance: MELATONIN
     Indication: PRODUCT USED FOR UNKNOWN INDICATION
     Dosage: 3 DOSAGE FORMS,1 D
     Route: 048

REACTIONS (1)
  - Priapism [Recovered/Resolved]

NARRATIVE: CASE EVENT DATE: 20191025
